FAERS Safety Report 7037035-9 (Version None)
Quarter: 2010Q4

REPORT INFORMATION
  Report Type: 
  Country: None (occurrence: None)
  Receive Date: 20101011
  Receipt Date: 20100930
  Transmission Date: 20110411
  Serious: Yes (Other)
  Sender: FDA-Public Use
  Company Number: JP-ASTRAZENECA-2010SE43666

PATIENT
  Age: 65 Year
  Sex: Female

DRUGS (4)
  1. CRESTOR [Suspect]
     Indication: HYPERCHOLESTEROLAEMIA
     Route: 048
     Dates: start: 20100819, end: 20100914
  2. TAKEPRON [Concomitant]
     Route: 048
     Dates: start: 20100819
  3. BLOPRESS [Concomitant]
     Route: 048
     Dates: start: 20040101
  4. ASPIRIN [Concomitant]
     Route: 048
     Dates: start: 20040101

REACTIONS (3)
  - EYE OEDEMA [None]
  - HEPATIC FUNCTION ABNORMAL [None]
  - OROPHARYNGEAL DISCOMFORT [None]
